FAERS Safety Report 5127183-2 (Version None)
Quarter: 2006Q4

REPORT INFORMATION
  Report Type: 
  Country: None (occurrence: None)
  Receive Date: 20061013
  Receipt Date: 20060929
  Transmission Date: 20070319
  Serious: Yes (Other)
  Sender: FDA-Public Use
  Company Number: US-JNJFOC-20060105228

PATIENT
  Sex: Female
  Weight: 69.85 kg

DRUGS (5)
  1. ORTHO EVRA [Suspect]
     Route: 062
  2. ORTHO EVRA [Suspect]
     Indication: CONTRACEPTION
     Route: 062
  3. ORTHO TRI-CYCLEN [Suspect]
     Indication: CONTRACEPTION
  4. SEASONALE [Suspect]
     Indication: CONTRACEPTION
  5. NEURONTIN [Concomitant]

REACTIONS (13)
  - ANXIETY [None]
  - ASTHENIA [None]
  - DEPRESSION [None]
  - FALL [None]
  - FAT NECROSIS [None]
  - HAEMATOMA [None]
  - HEART RATE IRREGULAR [None]
  - MUSCULOSKELETAL CHEST PAIN [None]
  - OVARIAN CYST [None]
  - PELVIC PAIN [None]
  - RADICULOPATHY [None]
  - SCIATICA [None]
  - TACHYCARDIA [None]
